FAERS Safety Report 13762114 (Version 3)
Quarter: 2019Q1

REPORT INFORMATION
  Report Type: Spontaneous
  Country: US (occurrence: US)
  Receive Date: 20170718
  Receipt Date: 20190321
  Transmission Date: 20190417
  Serious: Yes (Hospitalization)
  Sender: FDA-Public Use
  Company Number: US-ASTRAZENECA-2017SE71993

PATIENT
  Age: 860 Month
  Sex: Female
  Weight: 74.8 kg

DRUGS (6)
  1. LIPITOR [Concomitant]
     Active Substance: ATORVASTATIN CALCIUM
     Indication: ILL-DEFINED DISORDER
     Dosage: DAILY
     Route: 048
     Dates: start: 201706
  2. SYNTHROID [Concomitant]
     Active Substance: LEVOTHYROXINE SODIUM
     Indication: GOITRE
     Route: 048
  3. CELABREX [Concomitant]
     Indication: ARTHRITIS
     Dosage: WAS PRESCRIBED 200 MG 1-2 TIMES PER DAY BUT TAKES IT ONLY ONCE PER DAY SINCE INITIATION OF BRILIN...
     Route: 048
     Dates: start: 2013
  4. LISINOPRIL. [Suspect]
     Active Substance: LISINOPRIL
     Indication: HYPERTENSION
     Route: 048
     Dates: start: 2002
  5. APRIN [Concomitant]
     Indication: ILL-DEFINED DISORDER
     Route: 048
     Dates: start: 201706
  6. BRILINTA [Suspect]
     Active Substance: TICAGRELOR
     Indication: STENT PLACEMENT
     Route: 048
     Dates: start: 20170610, end: 20190105

REACTIONS (15)
  - Arthralgia [Not Recovered/Not Resolved]
  - Myocardial infarction [Recovered/Resolved]
  - Contusion [Not Recovered/Not Resolved]
  - Hypoaesthesia [Not Recovered/Not Resolved]
  - Skin discolouration [Not Recovered/Not Resolved]
  - Erythema [Not Recovered/Not Resolved]
  - Fatigue [Not Recovered/Not Resolved]
  - Chest pain [Recovered/Resolved]
  - Limb mass [Not Recovered/Not Resolved]
  - Intentional product misuse [Unknown]
  - Gait disturbance [Not Recovered/Not Resolved]
  - Goitre [Not Recovered/Not Resolved]
  - Vasodilatation [Not Recovered/Not Resolved]
  - Malaise [Not Recovered/Not Resolved]
  - Induration [Not Recovered/Not Resolved]

NARRATIVE: CASE EVENT DATE: 201706
